FAERS Safety Report 7010338-X (Version None)
Quarter: 2010Q3

REPORT INFORMATION
  Report Type: 
  Country: None (occurrence: None)
  Receive Date: 20100923
  Receipt Date: 20100915
  Transmission Date: 20110219
  Serious: Yes (Other)
  Sender: FDA-Public Use
  Company Number: B0675912A

PATIENT
  Sex: Male

DRUGS (1)
  1. AVIDART [Suspect]
     Route: 065

REACTIONS (1)
  - THROMBOCYTOPENIA [None]
